FAERS Safety Report 16882788 (Version 2)
Quarter: 2019Q4

REPORT INFORMATION
  Report Type: Spontaneous
  Country: RO (occurrence: RO)
  Receive Date: 20191003
  Receipt Date: 20191009
  Transmission Date: 20200122
  Serious: Yes (Death, Hospitalization, Other)
  Sender: FDA-Public Use
  Company Number: RO-AUROBINDO-AUR-APL-2019-063736

PATIENT
  Age: 54 Year
  Sex: Male

DRUGS (6)
  1. MERONEM [Suspect]
     Active Substance: MEROPENEM
     Indication: PRODUCT USED FOR UNKNOWN INDICATION
     Dosage: UNK
     Route: 065
  2. TACROLIMUS. [Suspect]
     Active Substance: TACROLIMUS
     Indication: IMMUNOSUPPRESSANT DRUG THERAPY
     Dosage: UNK
  3. AMPHOTERICIN B. [Suspect]
     Active Substance: AMPHOTERICIN B
     Indication: PRODUCT USED FOR UNKNOWN INDICATION
     Dosage: 1.2 MILLIGRAM/KILOGRAM
     Route: 065
  4. METRONIDAZOLE. [Suspect]
     Active Substance: METRONIDAZOLE
     Indication: PRODUCT USED FOR UNKNOWN INDICATION
     Dosage: UNK
     Route: 065
  5. TACROLIMUS. [Suspect]
     Active Substance: TACROLIMUS
     Indication: LIVER TRANSPLANT
     Dosage: UNK
     Route: 065
  6. LINEZOLID. [Suspect]
     Active Substance: LINEZOLID
     Indication: PRODUCT USED FOR UNKNOWN INDICATION
     Dosage: UNK
     Route: 065

REACTIONS (14)
  - Headache [Fatal]
  - Disease progression [Unknown]
  - Cerebral infarction [Fatal]
  - Eyelid ptosis [Fatal]
  - Multiple organ dysfunction syndrome [Fatal]
  - Rhinocerebral mucormycosis [Fatal]
  - Aspergillus infection [Unknown]
  - Drug ineffective [Unknown]
  - Periorbital oedema [Fatal]
  - Hypoaesthesia [Fatal]
  - Enterococcal infection [Unknown]
  - Cerebrovascular accident [Fatal]
  - Escherichia infection [Unknown]
  - Pseudomonas infection [Unknown]
